FAERS Safety Report 23273448 (Version 2)
Quarter: 2024Q1

REPORT INFORMATION
  Report Type: Report from Study
  Country: US (occurrence: US)
  Receive Date: 20231207
  Receipt Date: 20240227
  Transmission Date: 20240409
  Serious: Yes (Hospitalization)
  Sender: FDA-Public Use
  Company Number: US-MEDUNIK-2023US000345

PATIENT

DRUGS (5)
  1. SODIUM PHENYLBUTYRATE [Suspect]
     Active Substance: SODIUM PHENYLBUTYRATE
     Indication: Urea cycle disorder
     Dosage: 5.5 GRAMS BY MOUTH THREE TIMES DAILY (BREAKFAST, LUNCH, SUPPER)
     Route: 048
     Dates: start: 20231026, end: 2023
  2. SODIUM PHENYLBUTYRATE [Suspect]
     Active Substance: SODIUM PHENYLBUTYRATE
     Indication: Argininosuccinate synthetase deficiency
     Dosage: 5.5 GRAMS BY MOUTH THREE TIMES DAILY
     Route: 048
     Dates: start: 2023
  3. ARGININE [Concomitant]
     Active Substance: ARGININE
     Indication: Product used for unknown indication
     Dosage: 1000 MILLIGRAM
  4. CALCIUM [Concomitant]
     Active Substance: CALCIUM
     Indication: Product used for unknown indication
  5. VITAMINS [Concomitant]
     Active Substance: VITAMINS
     Indication: Product used for unknown indication

REACTIONS (7)
  - Coma [Unknown]
  - Ammonia increased [Unknown]
  - Circumstance or information capable of leading to medication error [Unknown]
  - Wrong technique in product usage process [Unknown]
  - Product dose omission in error [Unknown]
  - Suspected product quality issue [Unknown]
  - Product residue present [Unknown]

NARRATIVE: CASE EVENT DATE: 20231031
